FAERS Safety Report 6565713-4 (Version None)
Quarter: 2010Q1

REPORT INFORMATION
  Report Type: 
  Country: None (occurrence: None)
  Receive Date: 20100201
  Receipt Date: 20100122
  Transmission Date: 20100710
  Serious: Yes (Hospitalization)
  Sender: FDA-Public Use
  Company Number: JP-AMGEN-US379292

PATIENT
  Sex: Male
  Weight: 50 kg

DRUGS (18)
  1. ENBREL [Suspect]
     Indication: RHEUMATOID ARTHRITIS
     Route: 058
     Dates: start: 20070711, end: 20080508
  2. ENBREL [Suspect]
     Route: 058
     Dates: start: 20080523, end: 20080724
  3. ENBREL [Suspect]
     Dosage: 50 MG/WEEK (SOLUTION FOR INJECTION)
     Route: 058
     Dates: start: 20080728
  4. PROGRAF [Suspect]
     Indication: RHEUMATOID ARTHRITIS
     Route: 048
     Dates: start: 20080414, end: 20080509
  5. METHOTREXATE [Suspect]
     Indication: RHEUMATOID ARTHRITIS
     Dosage: UNKNOWN
     Route: 048
     Dates: start: 20080414, end: 20080509
  6. METHOTREXATE [Suspect]
     Dosage: UNKNOWN
     Route: 048
     Dates: start: 20080523
  7. FOLIAMIN [Concomitant]
     Route: 048
     Dates: start: 20080414
  8. PREDNISOLONE [Concomitant]
     Indication: RHEUMATOID ARTHRITIS
     Dosage: 10 MG
     Route: 048
     Dates: start: 20070306
  9. PREDNISOLONE [Concomitant]
     Dosage: 20 MG
     Dates: end: 20070428
  10. PREDNISOLONE [Concomitant]
     Dosage: 30 MG
     Dates: start: 20070428
  11. MICARDIS [Concomitant]
     Indication: HYPERTENSION
     Route: 048
     Dates: start: 20080414
  12. VOLTAREN [Concomitant]
     Indication: RHEUMATOID ARTHRITIS
     Dates: start: 20080414
  13. OMEPRAL [Concomitant]
     Indication: PROPHYLAXIS
     Route: 048
     Dates: start: 20080414
  14. LOXONIN [Concomitant]
     Indication: RHEUMATOID ARTHRITIS
     Dosage: 60 MG
     Route: 048
     Dates: start: 20080414
  15. MUCOSTA [Concomitant]
     Dosage: 100 MG
     Route: 048
     Dates: start: 20080414
  16. BONALON [Concomitant]
     Indication: OSTEOPOROSIS
     Route: 048
     Dates: start: 20080414
  17. CLARITH [Concomitant]
     Route: 048
     Dates: start: 20080414
  18. ADALAT [Concomitant]
     Indication: HYPERTENSION
     Route: 048
     Dates: start: 20080414

REACTIONS (1)
  - HERPES ZOSTER [None]
